FAERS Safety Report 19637053 (Version 2)
Quarter: 2021Q3

REPORT INFORMATION
  Report Type: Report from Study
  Country: CN (occurrence: CN)
  Receive Date: 20210730
  Receipt Date: 20210928
  Transmission Date: 20211014
  Serious: Yes (Hospitalization)
  Sender: FDA-Public Use
  Company Number: NVSC2021CN166700

PATIENT
  Age: 51 Year
  Sex: Male

DRUGS (6)
  1. ZYKADIA [Suspect]
     Active Substance: CERITINIB
     Dosage: 300 MG, QD (AT THE END OF JUL 2021)
     Route: 065
     Dates: start: 202107
  2. ZYKADIA [Suspect]
     Active Substance: CERITINIB
     Dosage: 450 MG, QD
     Route: 065
     Dates: start: 20210805, end: 202109
  3. ZYKADIA [Suspect]
     Active Substance: CERITINIB
     Dosage: 450 MG, QD
     Route: 048
     Dates: start: 20210718, end: 202107
  4. ZYKADIA [Suspect]
     Active Substance: CERITINIB
     Dosage: 300 MG, QD
     Route: 048
     Dates: start: 202107, end: 20210710
  5. ZYKADIA [Suspect]
     Active Substance: CERITINIB
     Indication: NON-SMALL CELL LUNG CANCER
     Dosage: 450 MG, QD
     Route: 048
     Dates: start: 20201026, end: 202107
  6. ZYKADIA [Suspect]
     Active Substance: CERITINIB
     Dosage: UNK
     Route: 048
     Dates: start: 20210710, end: 20210714

REACTIONS (5)
  - Movement disorder [Unknown]
  - Dyspnoea [Unknown]
  - Condition aggravated [Unknown]
  - Diarrhoea [Recovering/Resolving]
  - Dyspnoea exertional [Unknown]

NARRATIVE: CASE EVENT DATE: 202107
